FAERS Safety Report 4614737-2 (Version None)
Quarter: 2005Q1

REPORT INFORMATION
  Report Type: 
  Country: None (occurrence: None)
  Receive Date: 20050322
  Receipt Date: 20050308
  Transmission Date: 20050727
  Serious: Yes (Death, Other)
  Sender: FDA-Public Use
  Company Number: 200511828US

PATIENT
  Sex: Female

DRUGS (5)
  1. DOCETAXEL [Suspect]
     Indication: NON-SMALL CELL LUNG CANCER STAGE IV
     Route: 042
     Dates: start: 20050221, end: 20050221
  2. TOPOTECAN HYDROCHLORIDE [Suspect]
     Indication: NON-SMALL CELL LUNG CANCER STAGE IV
     Route: 042
     Dates: start: 20050221, end: 20050221
  3. ADVAIR DISKUS 100/50 [Concomitant]
     Dates: start: 20040803
  4. DEMADEX [Concomitant]
     Dates: start: 20050220
  5. DEXAMETHASONE [Concomitant]
     Indication: PREMEDICATION
     Route: 048
     Dates: start: 20050220, end: 20050221

REACTIONS (10)
  - DEEP VEIN THROMBOSIS [None]
  - ELECTROCARDIOGRAM POOR R-WAVE PROGRESSION [None]
  - ELECTROCARDIOGRAM ST-T CHANGE [None]
  - HAEMOPTYSIS [None]
  - PLEURAL EFFUSION [None]
  - PNEUMONIA [None]
  - PULMONARY HAEMORRHAGE [None]
  - RESPIRATORY ARREST [None]
  - THROMBOCYTOPENIA [None]
  - WHITE BLOOD CELL COUNT DECREASED [None]
